FAERS Safety Report 7735424-8 (Version None)
Quarter: 2011Q3

REPORT INFORMATION
  Report Type: 
  Country: None (occurrence: None)
  Receive Date: 20110907
  Receipt Date: 20110831
  Transmission Date: 20111222
  Serious: Yes (Hospitalization, Other)
  Sender: FDA-Public Use
  Company Number: US-ABBOTT-11P-163-0850947-00

PATIENT
  Age: 62 Year
  Sex: Male

DRUGS (10)
  1. HUMIRA [Suspect]
     Dates: start: 20110401
  2. AZULFIDINE [Suspect]
     Indication: PSORIATIC ARTHROPATHY
  3. SINGULAIR [Concomitant]
     Indication: SEASONAL ALLERGY
     Dates: start: 20060101
  4. HUMIRA [Suspect]
     Dates: end: 20110401
  5. TOPICALS [Concomitant]
     Indication: PSORIASIS
     Route: 061
  6. SYNTHROID [Concomitant]
     Indication: HYPOTHYROIDISM
     Dates: start: 20090101
  7. VYTORIN [Concomitant]
     Indication: BLOOD CHOLESTEROL INCREASED
     Dates: start: 20010101
  8. ALLEGRA [Concomitant]
     Indication: SEASONAL ALLERGY
     Dates: start: 20060101
  9. HUMIRA [Suspect]
     Indication: PSORIATIC ARTHROPATHY
     Dates: start: 20100101
  10. BYSTOLIC [Concomitant]
     Indication: HYPERTENSION
     Dates: start: 20010101

REACTIONS (11)
  - DIZZINESS [None]
  - STRESS [None]
  - CARDIAC ENZYMES INCREASED [None]
  - ADVERSE DRUG REACTION [None]
  - ARTHRALGIA [None]
  - DRUG INEFFECTIVE [None]
  - MYOCARDIAL INFARCTION [None]
  - ANXIETY [None]
  - PSORIASIS [None]
  - DRUG EFFECT DECREASED [None]
  - HEART RATE INCREASED [None]
